FAERS Safety Report 23115200 (Version 1)
Quarter: 2023Q4

REPORT INFORMATION
  Report Type: Spontaneous
  Country: US (occurrence: None)
  Receive Date: 20231026
  Receipt Date: 20231026
  Transmission Date: 20240110
  Serious: No
  Sender: FDA-Public Use
  Company Number: None

PATIENT
  Age: 36 Year
  Sex: Female
  Weight: 55 kg

DRUGS (3)
  1. PRAZOSIN [Suspect]
     Active Substance: PRAZOSIN
     Indication: COVID-19
     Dates: start: 20231021, end: 20231022
  2. PRAZOSIN [Suspect]
     Active Substance: PRAZOSIN
     Indication: Nightmare
  3. PAXLOVID [Suspect]
     Active Substance: NIRMATRELVIR\RITONAVIR

REACTIONS (3)
  - Hypotension [None]
  - Dizziness [None]
  - Tachycardia [None]

NARRATIVE: CASE EVENT DATE: 20231021
